FAERS Safety Report 20729976 (Version 4)
Quarter: 2022Q2

REPORT INFORMATION
  Report Type: Spontaneous
  Country: US (occurrence: US)
  Receive Date: 20220420
  Receipt Date: 20220628
  Transmission Date: 20220721
  Serious: Yes (Other)
  Sender: FDA-Public Use
  Company Number: US-PFIZER INC-202101803471

PATIENT
  Age: 53 Year
  Sex: Female

DRUGS (1)
  1. IBRANCE [Suspect]
     Active Substance: PALBOCICLIB
     Indication: Breast cancer female
     Dosage: 125 MG
     Dates: start: 20210824

REACTIONS (12)
  - Haemorrhage [Unknown]
  - Product dose omission issue [Unknown]
  - Decreased appetite [Unknown]
  - Fatigue [Unknown]
  - Malaise [Unknown]
  - Depressed mood [Unknown]
  - Dry skin [Unknown]
  - Alopecia [Unknown]
  - Constipation [Unknown]
  - Contusion [Unknown]
  - Diarrhoea [Unknown]
  - White blood cell count decreased [Unknown]
